FAERS Safety Report 4515988-8 (Version None)
Quarter: 2004Q4

REPORT INFORMATION
  Report Type: 
  Country: None (occurrence: None)
  Receive Date: 20041201
  Receipt Date: 20041101
  Transmission Date: 20050328
  Serious: Yes (Life-Threatening, Hospitalization)
  Sender: FDA-Public Use
  Company Number: M2004.1777

PATIENT
  Age: 80 Year
  Sex: Female
  Weight: 80 kg

DRUGS (10)
  1. FUROSEMIDE [Suspect]
     Indication: CARDIAC FAILURE
     Dosage: 40 MG, DAILY, ORAL
     Route: 048
  2. FUROSEMIDE [Suspect]
     Indication: OEDEMA
     Dosage: 40 MG, DAILY, ORAL
     Route: 048
  3. IBUPROFEN [Suspect]
     Indication: PAIN
     Dosage: 400 MG TID, ORAL
     Route: 048
     Dates: start: 20040809, end: 20040811
  4. RAMIPRIL [Suspect]
     Indication: HYPERTENSION
     Dosage: 10 MG ORALLY DAILY
     Dates: start: 20040811
  5. CLEXANE (ENOXAPARIN) [Suspect]
     Indication: THROMBOSIS PROPHYLAXIS
     Dosage: 400 MG SUBCUTANEOUS
     Route: 058
     Dates: start: 20040809, end: 20040814
  6. SERETIDE (FLUTICASONE/SALMETEROL [Concomitant]
  7. PARACETAMOL (PARACETAMOL; 1 G QDS, ORAL) [Concomitant]
  8. FLUCLOXACILLIN (FLUCLOXACILLIN) [Concomitant]
  9. BENZYLPENICILLIN (BENZYLPENICILLIN) [Concomitant]
  10. NYSATATIN (NYSTATIN, 1 ML QDS, ORAL) [Concomitant]

REACTIONS (14)
  - BLOOD CHLORIDE DECREASED [None]
  - BLOOD POTASSIUM INCREASED [None]
  - BLOOD SODIUM DECREASED [None]
  - DEHYDRATION [None]
  - DUODENITIS [None]
  - GASTRITIS [None]
  - GASTROINTESTINAL DISORDER [None]
  - HIATUS HERNIA [None]
  - NEPHROPATHY TOXIC [None]
  - OESOPHAGITIS [None]
  - RENAL FAILURE ACUTE [None]
  - SEPSIS [None]
  - ULCER [None]
  - ULCER HAEMORRHAGE [None]
